FAERS Safety Report 4367054-2 (Version None)
Quarter: 2004Q2

REPORT INFORMATION
  Report Type: 
  Country: None (occurrence: None)
  Receive Date: 20040528
  Receipt Date: 20040525
  Transmission Date: 20050107
  Serious: Yes (Hospitalization)
  Sender: FDA-Public Use
  Company Number: US-JNJFOC-20040406410

PATIENT
  Sex: Female

DRUGS (15)
  1. ULTRAM [Suspect]
     Indication: DRUG USE FOR UNKNOWN INDICATION
     Route: 049
  2. PRILOSEC [Concomitant]
     Dosage: 2 EVERY AM AND 1 EVERY PM
  3. ALPRAZOLAM [Concomitant]
  4. CORDARONE [Concomitant]
  5. COREG [Concomitant]
  6. CAPTOPRIL [Concomitant]
  7. FERREX [Concomitant]
  8. FOLTX [Concomitant]
     Dosage: .625-2.5 EVERY DAY
  9. CLONAZEPAM [Concomitant]
     Dosage: ONE EVERY NIGHT
  10. COUMADIN [Concomitant]
  11. POTASSIUM CHLORIDE [Concomitant]
  12. FUROSEMIDE [Concomitant]
  13. NOVOLOG INJECTABLE [Concomitant]
     Dosage: 8-12 UNITS THREE TIMES DAILY
  14. LANTUS INJECTABLE [Concomitant]
     Dosage: 18 UNITS EVERY NIGHT
  15. COENZYME Q10 [Concomitant]

REACTIONS (8)
  - AKINESIA [None]
  - CARDIAC FAILURE CONGESTIVE [None]
  - CARDIOMYOPATHY [None]
  - CEREBROVASCULAR ACCIDENT [None]
  - INTRACARDIAC THROMBUS [None]
  - MEMORY IMPAIRMENT [None]
  - MOVEMENT DISORDER [None]
  - TRANSIENT ISCHAEMIC ATTACK [None]
